FAERS Safety Report 11084352 (Version 2)
Quarter: 2015Q2

REPORT INFORMATION
  Report Type: Spontaneous
  Country: US (occurrence: US)
  Receive Date: 20150502
  Receipt Date: 20150525
  Transmission Date: 20150821
  Serious: No
  Sender: FDA-Public Use
  Company Number: US-JNJFOC-20130810358

PATIENT
  Age: 19 Year
  Sex: Female
  Weight: 55.34 kg

DRUGS (3)
  1. VITAMIN D [Concomitant]
     Active Substance: CHOLECALCIFEROL
     Indication: NUTRITIONAL SUPPLEMENTATION
     Route: 048
     Dates: start: 2012
  2. ZYRTEC [Concomitant]
     Active Substance: CETIRIZINE HYDROCHLORIDE
     Indication: MULTIPLE ALLERGIES
     Route: 048
     Dates: start: 2011
  3. ORTHO EVRA [Suspect]
     Active Substance: ETHINYL ESTRADIOL\NORELGESTROMIN
     Indication: MENSTRUATION IRREGULAR
     Route: 062
     Dates: start: 20130817

REACTIONS (3)
  - Product quality issue [Unknown]
  - Product use issue [Unknown]
  - Withdrawal bleed [Recovered/Resolved]

NARRATIVE: CASE EVENT DATE: 20130817
